FAERS Safety Report 16284906 (Version 1)
Quarter: 2019Q2

REPORT INFORMATION
  Report Type: Spontaneous
  Country: CZ (occurrence: CZ)
  Receive Date: 20190508
  Receipt Date: 20190508
  Transmission Date: 20190711
  Serious: Yes (Life-Threatening, Hospitalization, Other)
  Sender: FDA-Public Use
  Company Number: CZ-ADIENNEP-2019AD000195

PATIENT
  Age: 61 Year
  Sex: Female

DRUGS (6)
  1. ETOPOSIDE. [Suspect]
     Active Substance: ETOPOSIDE
     Indication: STEM CELL TRANSPLANT
     Dosage: 320 MG
     Route: 042
     Dates: start: 20190222, end: 20190225
  2. CYTOSAR [Suspect]
     Active Substance: CYTARABINE
     Indication: STEM CELL TRANSPLANT
     Dosage: 2 DOSAGES 320 MG DAILY
     Route: 042
     Dates: start: 20190222, end: 20190225
  3. ALKERAN [Suspect]
     Active Substance: MELPHALAN
     Indication: STEM CELL TRANSPLANT
     Dosage: 224 MG
     Route: 042
     Dates: start: 20190226, end: 20190226
  4. TEPADINA [Suspect]
     Active Substance: THIOTEPA
     Indication: STEM CELL TRANSPLANT
     Dosage: 584 MG
     Route: 042
     Dates: start: 20190221, end: 20190221
  5. MERONEM [Concomitant]
     Active Substance: MEROPENEM
     Dosage: 3 DOSAGES 2 G DAILY
     Dates: start: 20190228, end: 20190319
  6. LINEZOLID. [Concomitant]
     Active Substance: LINEZOLID
     Dosage: 2 DOSAGES 600 MG DAILY
     Dates: start: 20190228, end: 20190319

REACTIONS (2)
  - Mucosal toxicity [Recovered/Resolved]
  - Neurotoxicity [Unknown]
